FAERS Safety Report 25453643 (Version 1)
Quarter: 2025Q2

REPORT INFORMATION
  Report Type: Spontaneous
  Country: CH (occurrence: CH)
  Receive Date: 20250619
  Receipt Date: 20250619
  Transmission Date: 20250716
  Serious: Yes (Other)
  Sender: NOVO NORDISK
  Company Number: CH-NOVOPROD-1456206

PATIENT
  Age: 56 Year
  Sex: Female

DRUGS (3)
  1. WEGOVY [Suspect]
     Active Substance: SEMAGLUTIDE
     Indication: Cardiovascular event prophylaxis
     Dosage: 0.25 MG, QW
     Dates: start: 202412
  2. WEGOVY [Suspect]
     Active Substance: SEMAGLUTIDE
     Indication: Obesity
  3. AMIODARONE [Suspect]
     Active Substance: AMIODARONE
     Indication: Heart failure with reduced ejection fraction
     Dates: start: 202408

REACTIONS (1)
  - Hyperthyroidism [Recovering/Resolving]
